FAERS Safety Report 8193216-2 (Version None)
Quarter: 2012Q1

REPORT INFORMATION
  Report Type: 
  Country: None (occurrence: None)
  Receive Date: 20120223
  Receipt Date: 20111014
  Transmission Date: 20120608
  Serious: Yes (Other)
  Sender: FDA-Public Use
  Company Number: WAES 1110USA02481

PATIENT

DRUGS (1)
  1. PROPECIA [Suspect]
     Dosage: PO
     Route: 048

REACTIONS (3)
  - SEXUAL DYSFUNCTION [None]
  - BREAST CANCER [None]
  - BREAST ENLARGEMENT [None]
